FAERS Safety Report 5753785-6 (Version None)
Quarter: 2008Q2

REPORT INFORMATION
  Report Type: 
  Country: None (occurrence: None)
  Receive Date: 20080527
  Receipt Date: 20080527
  Transmission Date: 20081010
  Serious: No
  Sender: FDA-Public Use
  Company Number: None

PATIENT
  Sex: Female
  Weight: 13.6 kg

DRUGS (4)
  1. CYCLOPHOSPHAMIDE [Suspect]
     Dosage: 720 MG
  2. DACTINOMYCIN [Suspect]
     Dosage: .7 MG
  3. IRINOTECAN HCL [Suspect]
     Dosage: 36 MG
  4. VINCRISTINE SULFATE [Suspect]
     Dosage: 6.6 MG

REACTIONS (3)
  - DIARRHOEA [None]
  - LYMPHOCYTE COUNT DECREASED [None]
  - VOMITING [None]
